FAERS Safety Report 20254050 (Version 1)
Quarter: 2021Q4

REPORT INFORMATION
  Report Type: Spontaneous
  Country: CA (occurrence: CA)
  Receive Date: 20211230
  Receipt Date: 20211230
  Transmission Date: 20220303
  Serious: Yes (Other)
  Sender: FDA-Public Use
  Company Number: CA-GILEAD-2021-0562883

PATIENT
  Age: 31 Year
  Sex: Male

DRUGS (2)
  1. SOVALDI [Suspect]
     Active Substance: SOFOSBUVIR
     Indication: Chronic hepatitis C
     Dosage: 400 MG, QD
     Route: 048
  2. DACLATASVIR [Concomitant]
     Active Substance: DACLATASVIR
     Dosage: 60 MG, QD
     Route: 048

REACTIONS (1)
  - Rhabdomyolysis [Unknown]
